FAERS Safety Report 19439559 (Version 1)
Quarter: 2021Q2

REPORT INFORMATION
  Report Type: Spontaneous
  Country: GB (occurrence: GB)
  Receive Date: 20210619
  Receipt Date: 20210619
  Transmission Date: 20210717
  Serious: Yes (Hospitalization, Other)
  Sender: FDA-Public Use
  Company Number: GB-AUROBINDO-AUR-APL-2021-025397

PATIENT
  Age: 21 Year
  Sex: Male

DRUGS (7)
  1. SERTRALINE [Concomitant]
     Active Substance: SERTRALINE HYDROCHLORIDE
     Indication: DISSOCIATIVE DISORDER
     Dosage: 50 MILLIGRAM, (EVERY MORNING)ONCE A DAY
     Route: 065
  2. QUETIAPINE. [Suspect]
     Active Substance: QUETIAPINE
     Indication: DISSOCIATIVE DISORDER
     Dosage: 50 MILLIGRAM, ONCE A DAY
     Route: 065
  3. ARIPIPRAZOLE. [Suspect]
     Active Substance: ARIPIPRAZOLE
     Indication: DISSOCIATIVE DISORDER
     Dosage: 10 MILLIGRAM, ONCE A DAY
  4. LORAZEPAM. [Suspect]
     Active Substance: LORAZEPAM
     Indication: DISSOCIATIVE DISORDER
     Dosage: 1 MILLIGRAM, FOUR TIMES/DAY
     Route: 065
  5. PROCYCLIDINE [Concomitant]
     Active Substance: PROCYCLIDINE
     Indication: MUSCULOSKELETAL STIFFNESS
     Dosage: 5 MILLIGRAM, 3 TIMES A DAY
     Route: 065
  6. DIAZEPAM. [Suspect]
     Active Substance: DIAZEPAM
     Indication: DISSOCIATIVE DISORDER
     Dosage: 10 MILLIGRAM, 3 TIMES A DAY
     Route: 065
  7. HALOPERIDOL. [Suspect]
     Active Substance: HALOPERIDOL
     Indication: DISSOCIATIVE DISORDER
     Dosage: 5 MILLIGRAM, ONCE A DAY
     Route: 065

REACTIONS (3)
  - Hyperprolactinaemia [Unknown]
  - Extrapyramidal disorder [Unknown]
  - Musculoskeletal stiffness [Unknown]
